FAERS Safety Report 15631865 (Version 1)
Quarter: 2018Q4

REPORT INFORMATION
  Report Type: Spontaneous
  Country: US (occurrence: US)
  Receive Date: 20181119
  Receipt Date: 20181119
  Transmission Date: 20190205
  Serious: No
  Sender: FDA-Public Use
  Company Number: US-TEVA-2018-US-975071

PATIENT
  Sex: Male

DRUGS (1)
  1. PROAIR HFA [Suspect]
     Active Substance: ALBUTEROL SULFATE
     Indication: ASTHMA
     Route: 065

REACTIONS (6)
  - Pain [Recovering/Resolving]
  - Pyrexia [Unknown]
  - Lethargy [Unknown]
  - Wrong product administered [Unknown]
  - Hypersensitivity [Unknown]
  - Product contamination [Unknown]

NARRATIVE: CASE EVENT DATE: 2018
